FAERS Safety Report 11904205 (Version 1)
Quarter: 2016Q1

REPORT INFORMATION
  Report Type: Spontaneous
  Country: US (occurrence: US)
  Receive Date: 20160108
  Receipt Date: 20160108
  Transmission Date: 20160526
  Serious: Yes (Other)
  Sender: FDA-Public Use
  Company Number: US-ROCHE-1580200

PATIENT
  Sex: Male

DRUGS (1)
  1. RITUXAN [Suspect]
     Active Substance: RITUXIMAB
     Indication: CHRONIC MYELOID LEUKAEMIA
     Dosage: 1 TREATMENT 4 WEEKS IN A ROW AND DID THAT 2 TIMES
     Route: 042
     Dates: start: 2013, end: 201401

REACTIONS (4)
  - Lymphocyte count decreased [Unknown]
  - Haemolytic anaemia [Unknown]
  - B-lymphocyte count decreased [Not Recovered/Not Resolved]
  - Immunoglobulins decreased [Not Recovered/Not Resolved]
